FAERS Safety Report 10502092 (Version 1)
Quarter: 2014Q4

REPORT INFORMATION
  Report Type: Spontaneous
  Country: GB (occurrence: GB)
  Receive Date: 20141007
  Receipt Date: 20141007
  Transmission Date: 20150528
  Serious: Yes (Hospitalization)
  Sender: FDA-Public Use
  Company Number: GB-JNJFOC-20140926796

PATIENT
  Age: 81 Year
  Sex: Male

DRUGS (6)
  1. BRINZOLAMIDE [Concomitant]
     Active Substance: BRINZOLAMIDE
     Route: 065
  2. RAMIPRIL. [Concomitant]
     Active Substance: RAMIPRIL
     Route: 065
  3. XARELTO [Suspect]
     Active Substance: RIVAROXABAN
     Indication: CEREBROVASCULAR ACCIDENT PROPHYLAXIS
     Route: 048
     Dates: start: 201404, end: 20140904
  4. ATORVASTATIN [Concomitant]
     Active Substance: ATORVASTATIN
     Route: 065
  5. XARELTO [Suspect]
     Active Substance: RIVAROXABAN
     Indication: ATRIAL FIBRILLATION
     Route: 048
     Dates: start: 201404, end: 20140904
  6. BISOPROLOL [Concomitant]
     Active Substance: BISOPROLOL
     Route: 065

REACTIONS (3)
  - Pleuritic pain [Unknown]
  - Pulmonary embolism [Not Recovered/Not Resolved]
  - Dyspnoea [Unknown]

NARRATIVE: CASE EVENT DATE: 20140904
